FAERS Safety Report 9778308 (Version 1)
Quarter: 2013Q4

REPORT INFORMATION
  Report Type: Spontaneous
  Country: US (occurrence: None)
  Receive Date: 20131220
  Receipt Date: 20131220
  Transmission Date: 20140711
  Serious: Yes (Disabling)
  Sender: FDA-Public Use
  Company Number: None

PATIENT
  Age: 63 Year
  Sex: Female
  Weight: 58.97 kg

DRUGS (5)
  1. TECFIDERA [Suspect]
     Indication: MULTIPLE SCLEROSIS RELAPSE
     Dosage: 2 PILLS 120 MG FOR 7 DAYS, 240 MG DAYS 8-30
     Route: 048
  2. LEVOTHYROXINE [Concomitant]
  3. ALPRAZOLAM [Concomitant]
  4. CALTRATE 600-D3 [Concomitant]
  5. ALIVE WOMEN^S 50+ [Concomitant]

REACTIONS (2)
  - Abdominal pain upper [None]
  - Abdominal pain upper [None]
